FAERS Safety Report 6695226-0 (Version None)
Quarter: 2010Q2

REPORT INFORMATION
  Report Type: 
  Country: None (occurrence: None)
  Receive Date: 20100423
  Receipt Date: 20100412
  Transmission Date: 20101027
  Serious: Yes (Hospitalization)
  Sender: FDA-Public Use
  Company Number: JP-WATSON-2010-05393

PATIENT
  Age: 18 Year
  Sex: Female

DRUGS (8)
  1. FENTANYL CITRATE [Suspect]
     Indication: ANAESTHESIA
     Dosage: UNK
  2. FENTANYL CITRATE [Suspect]
     Indication: PAIN
  3. MORPHINE SULFATE INJ [Suspect]
     Indication: ANAESTHESIA
     Dosage: UNK
  4. MORPHINE SULFATE INJ [Suspect]
     Indication: PAIN
  5. HALOPERIDOL LACTATE [Suspect]
     Indication: ANAESTHESIA
     Dosage: UNK
  6. HALOPERIDOL LACTATE [Suspect]
     Indication: PAIN
  7. DROPERIDOL [Suspect]
     Indication: GENERAL ANAESTHESIA
     Dosage: UNK
  8. DROPERIDOL [Suspect]
     Indication: PAIN

REACTIONS (1)
  - CATATONIA [None]
